FAERS Safety Report 7102944-9 (Version None)
Quarter: 2010Q4

REPORT INFORMATION
  Report Type: 
  Country: None (occurrence: None)
  Receive Date: 20101115
  Receipt Date: 20101110
  Transmission Date: 20110411
  Serious: Yes (Hospitalization)
  Sender: FDA-Public Use
  Company Number: CZ-ABBOTT-10P-217-0681182-00

PATIENT
  Sex: Male

DRUGS (9)
  1. KLACID [Suspect]
     Indication: PRODUCT USED FOR UNKNOWN INDICATION
  2. LEVEMIR [Concomitant]
     Indication: PRODUCT USED FOR UNKNOWN INDICATION
  3. NOVORAPID [Concomitant]
     Indication: PRODUCT USED FOR UNKNOWN INDICATION
     Route: 058
  4. RIFAMPICIN [Concomitant]
     Indication: PRODUCT USED FOR UNKNOWN INDICATION
     Route: 048
  5. PREDNISONE [Concomitant]
     Indication: PRODUCT USED FOR UNKNOWN INDICATION
  6. PYRIDOXIN [Concomitant]
     Indication: PRODUCT USED FOR UNKNOWN INDICATION
     Route: 048
  7. ATROVENT [Concomitant]
     Indication: PRODUCT USED FOR UNKNOWN INDICATION
  8. ANOPYRIN [Concomitant]
     Indication: PRODUCT USED FOR UNKNOWN INDICATION
     Route: 048
  9. CITALOPRAM [Concomitant]
     Indication: PRODUCT USED FOR UNKNOWN INDICATION
     Route: 048

REACTIONS (4)
  - FREQUENT BOWEL MOVEMENTS [None]
  - NAUSEA [None]
  - TUBERCULOUS PLEURISY [None]
  - VOMITING [None]
